FAERS Safety Report 8273204-8 (Version None)
Quarter: 2012Q2

REPORT INFORMATION
  Report Type: 
  Country: None (occurrence: None)
  Receive Date: 20120411
  Receipt Date: 20120403
  Transmission Date: 20120825
  Serious: Yes (Other)
  Sender: FDA-Public Use
  Company Number: US-UCBSA-054696

PATIENT
  Age: 27 Year
  Sex: Female
  Weight: 58.967 kg

DRUGS (4)
  1. CIMZIA [Suspect]
     Indication: CROHN'S DISEASE
     Route: 058
     Dates: start: 20111101
  2. MULTI-VITAMIN [Concomitant]
     Indication: VITAMIN SUPPLEMENTATION
     Route: 048
  3. ORTO-CYCLEN [Concomitant]
     Indication: CONTRACEPTION
     Route: 048
  4. LAMICTAL [Concomitant]
     Indication: EPILEPSY
     Route: 048

REACTIONS (1)
  - CERVICAL DYSPLASIA [None]
